FAERS Safety Report 6076723-8 (Version None)
Quarter: 2009Q1

REPORT INFORMATION
  Report Type: 
  Country: None (occurrence: None)
  Receive Date: 20090213
  Receipt Date: 20090129
  Transmission Date: 20090719
  Serious: Yes (Hospitalization, Other)
  Sender: FDA-Public Use
  Company Number: US-ELI_LILLY_AND_COMPANY-US200901005582

PATIENT
  Sex: Female

DRUGS (19)
  1. FORTEO [Suspect]
     Dosage: 20 UG, DAILY (1/D)
     Dates: start: 20080828, end: 20080901
  2. FORTEO [Suspect]
     Dosage: 20 UG, DAILY (1/D)
     Dates: start: 20090123
  3. FORTEO [Suspect]
     Dates: start: 20090129
  4. IRON [Concomitant]
  5. REGLAN [Concomitant]
  6. SYNTHROID [Concomitant]
  7. VASOTEC [Concomitant]
  8. XANAX [Concomitant]
  9. FLONASE [Concomitant]
  10. NASACORT [Concomitant]
  11. COLACE [Concomitant]
  12. CLARITIN [Concomitant]
  13. NORCO [Concomitant]
     Dosage: UNK, AS NEEDED
  14. MEGACE [Concomitant]
  15. CARDIZEM CD [Concomitant]
  16. LEXAPRO [Concomitant]
  17. NEURONTIN [Concomitant]
  18. TEMAZEPAM [Concomitant]
  19. PROTONIX [Concomitant]

REACTIONS (2)
  - HIP ARTHROPLASTY [None]
  - MOTOR DYSFUNCTION [None]
